FAERS Safety Report 7001713-8 (Version None)
Quarter: 2010Q3

REPORT INFORMATION
  Report Type: 
  Country: None (occurrence: None)
  Receive Date: 20100920
  Receipt Date: 20100914
  Transmission Date: 20110219
  Serious: Yes (Life-Threatening)
  Sender: FDA-Public Use
  Company Number: JP-ASTRAZENECA-2010SE40567

PATIENT
  Age: 32 Year
  Sex: Male
  Weight: 82 kg

DRUGS (9)
  1. SEROQUEL [Suspect]
     Indication: SCHIZOPHRENIA
     Route: 048
     Dates: start: 20100806, end: 20100809
  2. RISPERDAL [Suspect]
     Route: 048
     Dates: start: 20090101, end: 20100809
  3. TRIHEXIN [Concomitant]
     Route: 048
     Dates: end: 20100809
  4. HIBERNA [Concomitant]
     Route: 048
     Dates: start: 20070101, end: 20100809
  5. ALOSENN [Concomitant]
     Route: 048
     Dates: start: 20070101, end: 20100809
  6. PURSENNID [Concomitant]
     Route: 048
     Dates: end: 20100809
  7. BENZALIN [Concomitant]
     Route: 048
     Dates: start: 20070101, end: 20100809
  8. LODOPIN [Concomitant]
     Dates: start: 20100401, end: 20100809
  9. SEDRENA [Concomitant]
     Route: 065

REACTIONS (1)
  - RHABDOMYOLYSIS [None]
